FAERS Safety Report 9317271 (Version 1)
Quarter: 2013Q2

REPORT INFORMATION
  Report Type: Spontaneous
  Country: US (occurrence: US)
  Receive Date: 20130530
  Receipt Date: 20130530
  Transmission Date: 20140414
  Serious: No
  Sender: FDA-Public Use
  Company Number: US-NOVEN-12US004875

PATIENT
  Sex: Female
  Weight: 49.89 kg

DRUGS (8)
  1. DAYTRANA [Suspect]
     Indication: ATTENTION DEFICIT/HYPERACTIVITY DISORDER
     Dosage: 20 MG, QD FOR 9 HOURS
     Route: 062
  2. ARMOUR THYROID [Concomitant]
     Indication: HYPOTHYROIDISM
     Dosage: 30 MG, QD
     Route: 048
  3. CELEBREX [Concomitant]
     Indication: PAIN
     Dosage: 100 MG, BID
     Route: 048
  4. TRAMADOL [Concomitant]
     Indication: PAIN
     Dosage: 50 MG, BID
     Route: 048
  5. CALCIUM [Concomitant]
     Indication: MINERAL SUPPLEMENTATION
     Dosage: QD
     Route: 048
  6. MULTIVITAMIN                       /00097801/ [Concomitant]
     Indication: VITAMIN SUPPLEMENTATION
     Dosage: QD
  7. HORMONES [Concomitant]
     Indication: HORMONE REPLACEMENT THERAPY
     Dosage: UNK
     Route: 048
  8. PROGESTERONE [Concomitant]
     Indication: HORMONE REPLACEMENT THERAPY
     Dosage: UNK
     Route: 048

REACTIONS (4)
  - Drug administration error [Recovered/Resolved]
  - Off label use [Not Recovered/Not Resolved]
  - Product quality issue [Not Recovered/Not Resolved]
  - No adverse event [None]
